FAERS Safety Report 20572456 (Version 4)
Quarter: 2022Q4

REPORT INFORMATION
  Report Type: Spontaneous
  Country: US (occurrence: US)
  Receive Date: 20220309
  Receipt Date: 20221229
  Transmission Date: 20230112
  Serious: Yes (Other)
  Sender: FDA-Public Use
  Company Number: US-PFIZER INC-2021404358

PATIENT
  Age: 65 Year
  Sex: Female

DRUGS (1)
  1. XELJANZ XR [Suspect]
     Active Substance: TOFACITINIB CITRATE
     Dosage: 11 MG

REACTIONS (7)
  - Diabetes mellitus [Unknown]
  - Arthritis [Unknown]
  - Hypertension [Unknown]
  - Spinal disorder [Unknown]
  - Fibromyalgia [Unknown]
  - Gait disturbance [Unknown]
  - Memory impairment [Unknown]
